FAERS Safety Report 7553520-5 (Version None)
Quarter: 2011Q2

REPORT INFORMATION
  Report Type: 
  Country: None (occurrence: None)
  Receive Date: 20110617
  Receipt Date: 20110606
  Transmission Date: 20111010
  Serious: Yes (Death, Other)
  Sender: FDA-Public Use
  Company Number: US-BAYER-201041648NA

PATIENT
  Age: 83 Year
  Sex: Male
  Weight: 81.64 kg

DRUGS (20)
  1. ASPIRIN [Concomitant]
     Route: 048
  2. FAMOTIDINE [Concomitant]
     Route: 048
  3. ANCEF [Concomitant]
     Dosage: 2 GMS, UNK
     Route: 042
     Dates: start: 20040917
  4. DOBUTAMINE HYDROCHLORIDE [Concomitant]
     Route: 048
  5. DOPAMINE HCL [Concomitant]
     Dosage: 3 CC/HR
     Route: 042
     Dates: start: 20040917
  6. CALCIUM CHLORIDE [Concomitant]
     Dosage: 1 GM, UNK
     Route: 042
     Dates: start: 20040917
  7. NEOSYNEPHRINE [Concomitant]
     Dosage: UNK
     Route: 042
     Dates: start: 20040917
  8. CEFAZOLIN [Concomitant]
     Dosage: 1 GM, UNK
     Route: 042
     Dates: start: 20040917
  9. TRASYLOL [Suspect]
     Indication: AORTIC VALVE REPLACEMENT
  10. LIDOCAINE [Concomitant]
     Dosage: 100 MG, UNK
     Route: 042
     Dates: start: 20040917
  11. HEPARIN [Concomitant]
     Dosage: 30, 000 U, UNK
     Route: 042
     Dates: start: 20040917
  12. PROPOFOL [Concomitant]
     Dosage: UNK
     Route: 042
     Dates: start: 20040917
  13. FENTANYL-100 [Concomitant]
     Dosage: UNK
     Route: 042
     Dates: start: 20040917
  14. TRASYLOL [Suspect]
     Indication: CORONARY ARTERY BYPASS
     Dosage: 20 CC/HR, UNK
     Route: 042
     Dates: start: 20040917, end: 20040917
  15. MILRINONE [Concomitant]
     Dosage: UNK
     Route: 042
     Dates: start: 20040917
  16. MANNITOL [Concomitant]
     Dosage: 12.5 MG, UNK
     Route: 042
     Dates: start: 20040917
  17. NIFEDIPINE [Concomitant]
     Route: 048
  18. NITROGLYCERIN [Concomitant]
     Dosage: UNK
     Route: 042
     Dates: start: 20040917
  19. PROTAMINE SULFATE [Concomitant]
     Dosage: 450 MG, UNK
     Route: 042
     Dates: start: 20040917
  20. ALBUMIN (HUMAN) [Concomitant]
     Dosage: 50 ML, UNK
     Route: 042
     Dates: start: 20040917

REACTIONS (12)
  - UNEVALUABLE EVENT [None]
  - DEATH [None]
  - RENAL INJURY [None]
  - ANXIETY [None]
  - PAIN [None]
  - MULTI-ORGAN FAILURE [None]
  - RENAL FAILURE [None]
  - RENAL IMPAIRMENT [None]
  - FEAR [None]
  - STRESS [None]
  - EMOTIONAL DISTRESS [None]
  - INJURY [None]
